FAERS Safety Report 5870576-6 (Version None)
Quarter: 2008Q3

REPORT INFORMATION
  Report Type: 
  Country: None (occurrence: None)
  Receive Date: 20080904
  Receipt Date: 20080829
  Transmission Date: 20090109
  Serious: Yes (Other)
  Sender: FDA-Public Use
  Company Number: A0734593A

PATIENT
  Age: 56 Year
  Sex: Male
  Weight: 136.4 kg

DRUGS (2)
  1. AVANDIA [Suspect]
     Route: 048
     Dates: start: 20050601, end: 20070901
  2. AVANDAMET [Suspect]
     Dosage: 500MG TWICE PER DAY
     Route: 048
     Dates: start: 20050318, end: 20060106

REACTIONS (12)
  - ANXIETY [None]
  - CARDIAC DISORDER [None]
  - CARDIAC FAILURE CONGESTIVE [None]
  - CARDIAC VALVE DISEASE [None]
  - CONDITION AGGRAVATED [None]
  - DEPRESSION [None]
  - HEART INJURY [None]
  - MYOCARDIAL INFARCTION [None]
  - MYOCARDIAL ISCHAEMIA [None]
  - PAIN [None]
  - SWELLING [None]
  - WEIGHT INCREASED [None]
